FAERS Safety Report 23246783 (Version 1)
Quarter: 2023Q4

REPORT INFORMATION
  Report Type: Spontaneous
  Country: FR (occurrence: FR)
  Receive Date: 20231130
  Receipt Date: 20231130
  Transmission Date: 20240109
  Serious: Yes (Hospitalization)
  Sender: FDA-Public Use
  Company Number: None

PATIENT
  Age: 67 Year
  Sex: Male
  Weight: 67.9 kg

DRUGS (8)
  1. LINEZOLID [Suspect]
     Active Substance: LINEZOLID
     Indication: Bronchiolitis
     Dosage: 600 MG LINEZOLID, TAKEN 2 TIMES A DAY (1200MG/D)
     Route: 042
     Dates: start: 20231015, end: 20231103
  2. ACYCLOVIR [Concomitant]
     Active Substance: ACYCLOVIR
     Indication: Oral herpes
     Dosage: 3 DOSES OF 500 MG ACICLOVIR PER DAY
     Route: 042
     Dates: start: 20231018, end: 20231109
  3. ABASAGLAR 100 units/ml, solution for injection in cartridge [Concomitant]
     Indication: Diabetes mellitus inadequate control
     Dosage: PROGRESSIVE DOSE INCREASE: 12 IU PER DAY ON 20 OCT TO 38 IU PER DAY ON 31 OCT?40IU
     Route: 058
     Dates: start: 20231020, end: 20231109
  4. METRONIDAZOLE [Concomitant]
     Active Substance: METRONIDAZOLE
     Indication: Escherichia bacteraemia
     Dosage: 3 DOSES OF 500 MG METRONIDAZOLE PER DAY
     Dates: start: 20231030
  5. MERONEM 1 g, powder for solution for injection [Concomitant]
     Indication: Escherichia bacteraemia
     Dosage: 3 DOSES OF 2000 MG MERONEM PER DAY
     Route: 042
     Dates: start: 20231027, end: 20231030
  6. CEFTAZIDIME [Concomitant]
     Active Substance: CEFTAZIDIME
     Indication: Escherichia bacteraemia
     Dosage: 3 DOSES OF 2000 MG CEFTAZIDIME, PER DAY
     Dates: start: 20231030, end: 20231109
  7. PANTOPRAZOLE [Concomitant]
     Active Substance: PANTOPRAZOLE
     Indication: Gastrointestinal haemorrhage
     Dosage: 40 MG PANTOPRAZOLE DAILY
     Route: 042
     Dates: start: 20231029
  8. CASPOFUNGIN [Concomitant]
     Active Substance: CASPOFUNGIN
     Indication: Stomatitis
     Dosage: CASPOFUNGIN 50 MG ONCE DAILY
     Route: 042
     Dates: start: 20231018, end: 20231109

REACTIONS (1)
  - Hyperlactacidaemia [Recovered/Resolved]

NARRATIVE: CASE EVENT DATE: 20231030
